FAERS Safety Report 6104077-7 (Version None)
Quarter: 2009Q1

REPORT INFORMATION
  Report Type: 
  Country: None (occurrence: None)
  Receive Date: 20090305
  Receipt Date: 20090226
  Transmission Date: 20090719
  Serious: Yes (Hospitalization)
  Sender: FDA-Public Use
  Company Number: BR-ABBOTT-09P-020-0557951-00

PATIENT
  Sex: Male
  Weight: 84 kg

DRUGS (5)
  1. HUMIRA [Suspect]
     Indication: RHEUMATOID ARTHRITIS
     Route: 058
     Dates: start: 20081110, end: 20090120
  2. CLOBETASOL PROPIONATE [Concomitant]
     Indication: PSORIASIS
  3. CLOBETASOL PROPIONATE [Concomitant]
  4. UNKNOWN SHAMPOO [Concomitant]
     Indication: PSORIASIS
  5. METHOTREXATE [Concomitant]
     Indication: RHEUMATOID ARTHRITIS
     Dates: end: 20090120

REACTIONS (14)
  - ANAEMIA [None]
  - DEHYDRATION [None]
  - EATING DISORDER [None]
  - HEPATIC INFECTION [None]
  - INFECTION [None]
  - KIDNEY INFECTION [None]
  - LIVER DISORDER [None]
  - LOCALISED INFECTION [None]
  - NEPHROLITHIASIS [None]
  - PAIN IN EXTREMITY [None]
  - PNEUMONIA [None]
  - POISONING [None]
  - VOMITING [None]
  - WEIGHT DECREASED [None]
